FAERS Safety Report 4408183-4 (Version None)
Quarter: 2004Q3

REPORT INFORMATION
  Report Type: 
  Country: None (occurrence: None)
  Receive Date: 20040722
  Receipt Date: 20040712
  Transmission Date: 20050211
  Serious: Yes (Death, Life-Threatening, Hospitalization)
  Sender: FDA-Public Use
  Company Number: 04P-020-0260624-00

PATIENT
  Age: 42 Year
  Sex: Male
  Weight: 75 kg

DRUGS (11)
  1. KALETRA [Suspect]
     Indication: HIV INFECTION
     Dosage: 500 MG, 2 IN 1 D, PER ORAL
     Route: 048
     Dates: start: 20040322, end: 20040402
  2. KALETRA [Suspect]
     Indication: HIV INFECTION
     Dosage: 500 MG, 2 IN 1 D, PER ORAL
     Route: 048
     Dates: start: 20040503, end: 20040509
  3. ZIDOVUDINE W/LAMIVUDINE [Concomitant]
  4. PARACETAMOL [Concomitant]
  5. CLINDAMYCIN [Concomitant]
  6. PRIMAQUINE [Concomitant]
  7. CYANOCOBALAMIN [Concomitant]
  8. AMITRIPTYLINE HCL [Concomitant]
  9. FLUCONAZOLE [Concomitant]
  10. CAPTOPRIL [Concomitant]
  11. BACTRIM [Concomitant]

REACTIONS (20)
  - AGITATION [None]
  - ALANINE AMINOTRANSFERASE INCREASED [None]
  - ASPARTATE AMINOTRANSFERASE INCREASED [None]
  - BLOOD BILIRUBIN INCREASED [None]
  - BLOOD LACTATE DEHYDROGENASE INCREASED [None]
  - CONFUSIONAL STATE [None]
  - CYTOMEGALOVIRUS INFECTION [None]
  - DRUG TOXICITY [None]
  - GENERALISED OEDEMA [None]
  - HEPATIC FUNCTION ABNORMAL [None]
  - HYPONATRAEMIA [None]
  - NEUROPATHY PERIPHERAL [None]
  - OPPORTUNISTIC INFECTION [None]
  - PRURITUS [None]
  - PULMONARY CONGESTION [None]
  - PULMONARY OEDEMA [None]
  - RASH [None]
  - RENAL IMPAIRMENT [None]
  - RESPIRATION ABNORMAL [None]
  - TACHYPNOEA [None]
